FAERS Safety Report 8351335-1 (Version None)
Quarter: 2012Q2

REPORT INFORMATION
  Report Type: 
  Country: None (occurrence: None)
  Receive Date: 20120510
  Receipt Date: 20120501
  Transmission Date: 20120825
  Serious: Yes (Hospitalization, Other)
  Sender: FDA-Public Use
  Company Number: US-ABBOTT-12P-163-0931612-00

PATIENT
  Age: 37 Year
  Sex: Male

DRUGS (7)
  1. TYGACIL [Suspect]
  2. CIMZIA [Concomitant]
     Indication: CROHN'S DISEASE
     Dates: start: 20090101
  3. HUMIRA [Suspect]
     Dates: start: 20110601, end: 20111201
  4. HUMIRA [Suspect]
     Dates: start: 20111201
  5. MERCAPTOPURINE [Concomitant]
     Indication: CROHN'S DISEASE
  6. CANASA [Concomitant]
     Indication: CROHN'S DISEASE
     Dosage: DAILY
     Route: 054
  7. HUMIRA [Suspect]
     Indication: CROHN'S DISEASE
     Dates: start: 20080101, end: 20090101

REACTIONS (11)
  - ADVERSE DRUG REACTION [None]
  - CROHN'S DISEASE [None]
  - ABDOMINAL PAIN [None]
  - PANCREATITIS [None]
  - INTESTINAL RESECTION [None]
  - DRUG INEFFECTIVE [None]
  - ABSCESS INTESTINAL [None]
  - CLOSTRIDIAL INFECTION [None]
  - ANXIETY [None]
  - PYREXIA [None]
  - DIARRHOEA [None]
